FAERS Safety Report 12669395 (Version 1)
Quarter: 2016Q3

REPORT INFORMATION
  Report Type: Spontaneous
  Country: US (occurrence: US)
  Receive Date: 20160819
  Receipt Date: 20160819
  Transmission Date: 20161109
  Serious: Yes (Hospitalization)
  Sender: FDA-Public Use
  Company Number: US-UNICHEM LABORATORIES LIMITED-UCM201303-000018

PATIENT
  Age: 21 Year
  Sex: Female

DRUGS (1)
  1. LAMOTRIGINE. [Suspect]
     Active Substance: LAMOTRIGINE
     Indication: BIPOLAR DISORDER

REACTIONS (4)
  - Type 1 diabetes mellitus [Unknown]
  - Drug reaction with eosinophilia and systemic symptoms [Recovered/Resolved]
  - Hypothyroidism [Unknown]
  - Hyperthyroidism [Recovered/Resolved]
